FAERS Safety Report 12259592 (Version 2)
Quarter: 2020Q3

REPORT INFORMATION
  Report Type: Spontaneous
  Country: US (occurrence: US)
  Receive Date: 20160412
  Receipt Date: 20200717
  Transmission Date: 20201102
  Serious: No
  Sender: FDA-Public Use
  Company Number: US-SA-2015SA099568

PATIENT

DRUGS (8)
  1. ALLEGRA ALLERGY [Suspect]
     Active Substance: FEXOFENADINE HYDROCHLORIDE
     Indication: ALLERGY TO PLANTS
     Dosage: 180 MG,BID
     Route: 048
  2. RANITIDINE. [Concomitant]
     Active Substance: RANITIDINE
     Dosage: UNK UNK,UNK
     Route: 065
  3. ALLEGRA ALLERGY [Suspect]
     Active Substance: FEXOFENADINE HYDROCHLORIDE
     Indication: HYPERSENSITIVITY
     Dosage: 180 MG,Q6H
     Route: 048
  4. FLONASE [Concomitant]
     Active Substance: FLUTICASONE PROPIONATE
     Dosage: UNK UNK,UNK
     Route: 065
  5. ALLEGRA ALLERGY [Suspect]
     Active Substance: FEXOFENADINE HYDROCHLORIDE
     Indication: SEASONAL ALLERGY
     Dosage: 2 DF, QD
     Route: 065
     Dates: start: 2013
  6. ALLEGRA ALLERGY [Suspect]
     Active Substance: FEXOFENADINE HYDROCHLORIDE
     Indication: HYPERSENSITIVITY
     Dosage: 180 MG,BID
     Route: 048
     Dates: start: 201304
  7. ALLEGRA ALLERGY [Suspect]
     Active Substance: FEXOFENADINE HYDROCHLORIDE
     Indication: ALLERGY TO ANIMAL
  8. PREDNISONE. [Suspect]
     Active Substance: PREDNISONE
     Dosage: UNK UNK,UNK
     Route: 065

REACTIONS (8)
  - Peripheral swelling [Unknown]
  - Illness [Unknown]
  - Prescribed overdose [Unknown]
  - Dysphonia [Unknown]
  - Product odour abnormal [Unknown]
  - Product taste abnormal [Unknown]
  - Incorrect dose administered [Unknown]
  - Accidental overdose [Unknown]
